FAERS Safety Report 6781307-X (Version None)
Quarter: 2010Q2

REPORT INFORMATION
  Report Type: 
  Country: None (occurrence: None)
  Receive Date: 20100621
  Receipt Date: 20100610
  Transmission Date: 20101027
  Serious: Yes (Hospitalization, Other)
  Sender: FDA-Public Use
  Company Number: PHHY2010JP27052

PATIENT
  Sex: Male
  Weight: 95 kg

DRUGS (10)
  1. TEGRETOL [Suspect]
     Indication: TRIGEMINAL NEURALGIA
     Dosage: 100 MG, BID
     Route: 048
     Dates: start: 20081121, end: 20100427
  2. DIOVAN [Concomitant]
     Route: 048
  3. ASPIRIN [Concomitant]
     Indication: CEREBRAL INFARCTION
     Route: 048
  4. BASEN [Concomitant]
     Indication: DIABETES MELLITUS
     Dosage: 1 TABLET, TID
     Route: 048
  5. MEVALOTIN [Concomitant]
     Route: 048
  6. ZYLORIC ^FRESENIUS^ [Concomitant]
     Route: 048
  7. NORVASC [Concomitant]
     Route: 048
  8. WYTENS  /JPN/ [Concomitant]
     Route: 048
  9. ADALAT [Concomitant]
     Route: 048
  10. LASIX [Concomitant]
     Route: 048

REACTIONS (7)
  - AZOTAEMIA [None]
  - BLOOD CREATININE INCREASED [None]
  - DECREASED APPETITE [None]
  - HYPOGLYCAEMIA [None]
  - MALAISE [None]
  - NAUSEA [None]
  - RENAL IMPAIRMENT [None]
